FAERS Safety Report 5510095-X (Version None)
Quarter: 2007Q4

REPORT INFORMATION
  Report Type: 
  Country: None (occurrence: None)
  Receive Date: 20071108
  Receipt Date: 20070815
  Transmission Date: 20080405
  Serious: No
  Sender: FDA-Public Use
  Company Number: US-ABBOTT-07P-163-0378054-00

PATIENT
  Sex: Male
  Weight: 72.7 kg

DRUGS (7)
  1. KALETRA [Suspect]
     Indication: HIV INFECTION
     Route: 048
     Dates: start: 20050101
  2. ATORVASTATIN CALCIUM [Concomitant]
     Indication: DRUG USE FOR UNKNOWN INDICATION
  3. VERIAD [Concomitant]
     Indication: DRUG USE FOR UNKNOWN INDICATION
  4. DIDANOSINE [Concomitant]
     Indication: DRUG USE FOR UNKNOWN INDICATION
  5. CLONAZEPAM [Concomitant]
     Indication: DRUG USE FOR UNKNOWN INDICATION
  6. VENLAFAXINE HCL [Concomitant]
     Indication: DRUG USE FOR UNKNOWN INDICATION
  7. OLANZAPINE [Concomitant]
     Indication: DRUG USE FOR UNKNOWN INDICATION

REACTIONS (1)
  - ABDOMINAL DISTENSION [None]
